FAERS Safety Report 5779300-9 (Version None)
Quarter: 2008Q2

REPORT INFORMATION
  Report Type: 
  Country: None (occurrence: None)
  Receive Date: 20080619
  Receipt Date: 20080609
  Transmission Date: 20081010
  Serious: Yes (Other)
  Sender: FDA-Public Use
  Company Number: ES-ABBOTT-08P-144-0456103-00

PATIENT
  Age: 61 Year
  Sex: Female

DRUGS (13)
  1. HUMIRA [Suspect]
     Indication: RHEUMATOID ARTHRITIS
     Route: 058
     Dates: start: 20050401, end: 20080220
  2. DEZACOR 30 MG [Concomitant]
     Indication: RHEUMATOID ARTHRITIS
     Route: 048
  3. AZATHIOPRINE [Concomitant]
     Indication: RHEUMATOID ARTHRITIS
     Route: 048
     Dates: start: 20080101
  4. FOSAVANCE [Concomitant]
     Indication: OSTEOPOROSIS
     Route: 048
  5. CALCIUM CARBONATE [Concomitant]
     Indication: OSTEOPOROSIS
     Dosage: 2 TABLETS
     Route: 048
  6. NAPROXEN [Concomitant]
     Indication: PAIN
     Dosage: 1 TABLET
     Route: 048
  7. NAPROXEN [Concomitant]
     Route: 048
  8. PANTOPRAZOLE SODIUM [Concomitant]
     Indication: GASTRIC DISORDER
     Dosage: 1 TABLET
     Route: 048
  9. PANTOPRAZOLE SODIUM [Concomitant]
     Route: 048
  10. METAMIZOLE MAGNESIUM [Concomitant]
     Indication: PAIN
     Dosage: 1 TABLET AS NEEDED
     Route: 048
  11. METAMIZOLE MAGNESIUM [Concomitant]
  12. TIZANIDINE HYDROCHLORIDE [Concomitant]
     Indication: PAIN
     Dosage: 1 TABLET AS NEEDED
     Route: 048
  13. TIZANIDINE HYDROCHLORIDE [Concomitant]
     Route: 048

REACTIONS (7)
  - MUSCLE SPASMS [None]
  - MUSCULOSKELETAL PAIN [None]
  - MUSCULOSKELETAL STIFFNESS [None]
  - NECK PAIN [None]
  - PARAESTHESIA [None]
  - PERIPHERAL SENSORY NEUROPATHY [None]
  - UNEVALUABLE EVENT [None]
